FAERS Safety Report 6462840-7 (Version None)
Quarter: 2009Q4

REPORT INFORMATION
  Report Type: 
  Country: None (occurrence: None)
  Receive Date: 20091130
  Receipt Date: 20091117
  Transmission Date: 20100525
  Serious: Yes (Other)
  Sender: FDA-Public Use
  Company Number: FR-GILEAD-2009-0025474

PATIENT
  Sex: Female

DRUGS (4)
  1. TRUVADA [Suspect]
     Indication: HIV INFECTION
  2. KALETRA [Suspect]
  3. BACTRIM [Suspect]
  4. METHOTREXATE [Suspect]

REACTIONS (2)
  - DRUG INTERACTION [None]
  - LEUKAEMIA [None]
